FAERS Safety Report 5078713-0 (Version None)
Quarter: 2006Q3

REPORT INFORMATION
  Report Type: 
  Country: None (occurrence: None)
  Receive Date: 20060809
  Receipt Date: 20060809
  Transmission Date: 20061208
  Serious: No
  Sender: FDA-Public Use
  Company Number: None

PATIENT
  Age: 58 Year
  Sex: Male

DRUGS (3)
  1. MS CONTIN [Suspect]
     Indication: BACK PAIN
     Dosage: 15 MG PO BID
     Route: 048
  2. MS CONTIN [Suspect]
     Indication: DISABILITY
     Dosage: 15 MG PO BID
     Route: 048
  3. MS CONTIN [Suspect]
     Indication: GOUT
     Dosage: 15 MG PO BID
     Route: 048

REACTIONS (3)
  - CONDITION AGGRAVATED [None]
  - GOUT [None]
  - OEDEMA PERIPHERAL [None]
